FAERS Safety Report 18880290 (Version 1)
Quarter: 2021Q1

REPORT INFORMATION
  Report Type: Spontaneous
  Country: DE (occurrence: DE)
  Receive Date: 20210211
  Receipt Date: 20210211
  Transmission Date: 20210420
  Serious: Yes (Other)
  Sender: FDA-Public Use
  Company Number: NVSC2021DE026619

PATIENT
  Age: 53 Year
  Sex: Female

DRUGS (5)
  1. VARICELLA VACCINE [Suspect]
     Active Substance: VARICELLA-ZOSTER VIRUS STRAIN OKA/MERCK LIVE ANTIGEN
     Indication: PROPHYLAXIS
     Dosage: UNK (SHINGRIX)
     Route: 030
     Dates: start: 20191101
  2. VENLAFAXINE [Suspect]
     Active Substance: VENLAFAXINE HYDROCHLORIDE
     Indication: HERPES ZOSTER
     Dosage: 75MG (75 MG)
     Route: 065
  3. VARICELLA VACCINE [Suspect]
     Active Substance: VARICELLA-ZOSTER VIRUS STRAIN OKA/MERCK LIVE ANTIGEN
     Dosage: UNK
     Route: 030
     Dates: start: 20200110
  4. THYRONAJOD [Suspect]
     Active Substance: LEVOTHYROXINE SODIUM\POTASSIUM IODIDE
     Indication: HERPES ZOSTER
     Dosage: 75MG (75 MG)
     Route: 065
  5. PANTOPRAZOLE [Suspect]
     Active Substance: PANTOPRAZOLE
     Indication: HERPES ZOSTER
     Dosage: 20MG (20 MG)
     Route: 065

REACTIONS (3)
  - Vaccination failure [Unknown]
  - Herpes zoster [Recovered/Resolved]
  - Rash vesicular [Recovered/Resolved]

NARRATIVE: CASE EVENT DATE: 20201022
